FAERS Safety Report 6930782-6 (Version None)
Quarter: 2010Q3

REPORT INFORMATION
  Report Type: 
  Country: None (occurrence: None)
  Receive Date: 20100817
  Receipt Date: 20100817
  Transmission Date: 20110219
  Serious: No
  Sender: FDA-Public Use
  Company Number: None

PATIENT
  Age: 64 Year
  Sex: Female
  Weight: 71.6683 kg

DRUGS (2)
  1. SAVELLA [Suspect]
     Indication: FIBROMYALGIA
     Dosage: ONE DAILY PO
     Route: 048
     Dates: start: 20100501, end: 20100601
  2. TRAMADOL HCL [Suspect]
     Indication: FIBROMYALGIA
     Dosage: TWO TO THREE DAILY PO
     Route: 048
     Dates: start: 20090601, end: 20100701

REACTIONS (5)
  - ABDOMINAL PAIN [None]
  - CRYING [None]
  - HYPERTENSIVE ENCEPHALOPATHY [None]
  - IMPAIRED WORK ABILITY [None]
  - NIGHTMARE [None]
